FAERS Safety Report 11290283 (Version 4)
Quarter: 2015Q3

REPORT INFORMATION
  Report Type: Report from Study
  Country: DE (occurrence: DE)
  Receive Date: 20150722
  Receipt Date: 20150824
  Transmission Date: 20151125
  Serious: Yes (Death, Life-Threatening, Other)
  Sender: FDA-Public Use
  Company Number: DE-ROCHE-1596926

PATIENT
  Sex: Female

DRUGS (8)
  1. PREDNISOLONE. [Suspect]
     Active Substance: PREDNISOLONE
     Indication: B-CELL LYMPHOMA
     Dosage: ALL 14 DAYS FOR 49DAYS
     Route: 048
     Dates: start: 20150325, end: 20150512
  2. RITUXIMAB [Suspect]
     Active Substance: RITUXIMAB
     Indication: B-CELL LYMPHOMA
     Dosage: CYCLE NO 6, LAST DOSE PRIOR TO SAE:09/JUL/2015
     Route: 042
     Dates: start: 20150325
  3. VINCRISTINE [Suspect]
     Active Substance: VINCRISTINE
     Indication: B-CELL LYMPHOMA
     Dosage: ALL 14 DAYS FOR 45 DAYS
     Route: 042
     Dates: start: 20150325, end: 20150508
  4. PANTOPRAZOLE SODIUM. [Concomitant]
     Active Substance: PANTOPRAZOLE SODIUM
     Indication: PROPHYLAXIS
     Route: 048
     Dates: start: 20150618
  5. PREDNISOLONE. [Suspect]
     Active Substance: PREDNISOLONE
     Indication: PNEUMONITIS
     Route: 048
     Dates: start: 20150618
  6. CYCLOPHOSPHAMIDE. [Suspect]
     Active Substance: CYCLOPHOSPHAMIDE
     Indication: B-CELL LYMPHOMA
     Dosage: ALL 14 DAYS FOR 45 DAY
     Route: 042
     Dates: start: 20150325, end: 20150508
  7. DOXORUBICIN [Suspect]
     Active Substance: DOXORUBICIN
     Indication: B-CELL LYMPHOMA
     Dosage: ALL 14 DAYS FOR 45 DAYS
     Route: 042
     Dates: start: 20150325, end: 20150508
  8. PEGFILGRASTIM [Suspect]
     Active Substance: PEGFILGRASTIM
     Indication: B-CELL LYMPHOMA
     Dosage: ON DAY 4 OF EACH CYCLE FOR 44 DAYS, ON 13/MAY/2015
     Route: 058
     Dates: start: 20150329, end: 20150511

REACTIONS (4)
  - Septic shock [Not Recovered/Not Resolved]
  - Pneumonitis [Recovered/Resolved]
  - Pulmonary sepsis [Fatal]
  - Multi-organ failure [Not Recovered/Not Resolved]

NARRATIVE: CASE EVENT DATE: 20150618
